FAERS Safety Report 17762547 (Version 1)
Quarter: 2020Q2

REPORT INFORMATION
  Report Type: Spontaneous
  Country: CH (occurrence: CH)
  Receive Date: 20200508
  Receipt Date: 20200508
  Transmission Date: 20200714
  Serious: Yes (Other)
  Sender: FDA-Public Use
  Company Number: CH-009507513-2005CHE001164

PATIENT

DRUGS (2)
  1. TEMODAL [Suspect]
     Active Substance: TEMOZOLOMIDE
     Indication: MALIGNANT NEOPLASM PROGRESSION
     Dosage: LOW DOSE CHEMOTHERAPY, UNK
     Route: 048
     Dates: start: 200802, end: 200901
  2. TEMODAL [Suspect]
     Active Substance: TEMOZOLOMIDE
     Dosage: LOW DOSE CHEMOTHERAPY, UNK
     Route: 048
     Dates: start: 200904, end: 201407

REACTIONS (9)
  - Central nervous system lesion [Unknown]
  - Dysphagia [Unknown]
  - Subdural hygroma [Unknown]
  - Malignant neoplasm progression [Unknown]
  - Hemiparesis [Unknown]
  - Dyspraxia [Unknown]
  - Monoplegia [Unknown]
  - Epilepsy [Unknown]
  - Incontinence [Unknown]

NARRATIVE: CASE EVENT DATE: 201608
